FAERS Safety Report 5416745-0 (Version None)
Quarter: 2007Q3

REPORT INFORMATION
  Report Type: 
  Country: None (occurrence: None)
  Receive Date: 20070816
  Receipt Date: 20070809
  Transmission Date: 20080115
  Serious: Yes (Hospitalization)
  Sender: FDA-Public Use
  Company Number: B0483501A

PATIENT
  Sex: Female

DRUGS (1)
  1. HYCAMTIN [Suspect]
     Indication: CERVIX CARCINOMA
     Route: 065
     Dates: start: 20070101

REACTIONS (1)
  - NEUTROPENIC SEPSIS [None]
